FAERS Safety Report 6821125-7 (Version None)
Quarter: 2010Q3

REPORT INFORMATION
  Report Type: 
  Country: None (occurrence: None)
  Receive Date: 20100707
  Receipt Date: 20080401
  Transmission Date: 20110219
  Serious: No
  Sender: FDA-Public Use
  Company Number: US-PFIZER INC-2008028946

PATIENT
  Sex: Female
  Weight: 49.09 kg

DRUGS (7)
  1. ZOLOFT [Suspect]
     Indication: FIBROMYALGIA
     Dates: start: 20070101
  2. ZOLOFT [Suspect]
     Indication: ANXIETY
  3. ZOLOFT [Suspect]
     Indication: OBSESSIVE-COMPULSIVE DISORDER
  4. AZMACORT [Concomitant]
  5. FLOVENT [Concomitant]
  6. QVAR 40 [Concomitant]
  7. ALBUTEROL [Concomitant]

REACTIONS (17)
  - AGITATION [None]
  - ANGER [None]
  - ANXIETY [None]
  - CARDIAC DISORDER [None]
  - CRYING [None]
  - DEPRESSED MOOD [None]
  - EMOTIONAL DISORDER [None]
  - FEELING JITTERY [None]
  - HYPERACUSIS [None]
  - INSOMNIA [None]
  - JOINT SPRAIN [None]
  - JOINT SWELLING [None]
  - NASOPHARYNGITIS [None]
  - NERVOUSNESS [None]
  - PAIN [None]
  - RASH [None]
  - SINUSITIS [None]
